FAERS Safety Report 14044431 (Version 1)
Quarter: 2017Q4

REPORT INFORMATION
  Report Type: Report from Study
  Country: None (occurrence: RO)
  Receive Date: 20171004
  Receipt Date: 20171004
  Transmission Date: 20180321
  Serious: Yes (Hospitalization)
  Sender: FDA-Public Use
  Company Number: RO-ABBVIE-17S-135-2115188-00

PATIENT
  Age: 64 Year
  Sex: Male

DRUGS (16)
  1. ZENRA [Concomitant]
     Indication: CARDIAC DISORDER
     Route: 048
     Dates: end: 20170902
  2. TROMBOSTOP [Concomitant]
     Active Substance: ACENOCOUMAROL
     Indication: CARDIAC DISORDER
     Route: 048
     Dates: end: 20170902
  3. TERTENSIF [Concomitant]
     Active Substance: INDAPAMIDE
     Indication: CARDIAC DISORDER
     Route: 048
     Dates: start: 20170902
  4. OMEPRAZOL [Concomitant]
     Active Substance: OMEPRAZOLE
     Indication: CARDIAC DISORDER
     Route: 048
     Dates: end: 20170902
  5. VIEKIRAX [Suspect]
     Active Substance: OMBITASVIR\PARITAPREVIR\RITONAVIR
     Indication: HEPATITIS C
     Route: 048
     Dates: start: 20170623, end: 20170821
  6. EXVIERA [Suspect]
     Active Substance: DASABUVIR
     Indication: HEPATITIS C
     Route: 048
     Dates: start: 20170623, end: 20170821
  7. NOLPAZA [Concomitant]
     Active Substance: PANTOPRAZOLE SODIUM
     Indication: PRODUCT USED FOR UNKNOWN INDICATION
     Route: 048
     Dates: start: 20170902, end: 20170912
  8. EXVIERA [Suspect]
     Active Substance: DASABUVIR
     Indication: HEPATIC CIRRHOSIS
     Route: 048
     Dates: start: 20170902, end: 20170925
  9. METOPROLOL. [Concomitant]
     Active Substance: METOPROLOL
     Indication: CARDIAC DISORDER
     Route: 048
  10. SPIRONOLACTONE. [Concomitant]
     Active Substance: SPIRONOLACTONE
     Indication: CARDIAC DISORDER
     Route: 048
     Dates: end: 20170902
  11. VIEKIRAX [Suspect]
     Active Substance: OMBITASVIR\PARITAPREVIR\RITONAVIR
     Indication: HEPATIC CIRRHOSIS
     Route: 048
     Dates: start: 20170902, end: 20170925
  12. MALTOFER [Concomitant]
     Active Substance: IRON POLYMALTOSE
     Indication: ANAEMIA
     Route: 048
     Dates: start: 20170902
  13. SINTROM [Concomitant]
     Active Substance: ACENOCOUMAROL
     Indication: CARDIAC DISORDER
     Route: 048
     Dates: start: 20170902
  14. DILTIAZEM. [Concomitant]
     Active Substance: DILTIAZEM
     Indication: CARDIAC DISORDER
     Route: 048
     Dates: end: 20170902
  15. NEFRIX [Concomitant]
     Indication: CARDIAC DISORDER
     Route: 048
     Dates: end: 20170902
  16. OLICARD [Concomitant]
     Active Substance: ISOSORBIDE MONONITRATE
     Indication: CARDIAC DISORDER
     Route: 048
     Dates: start: 20170902

REACTIONS (8)
  - Blood bilirubin increased [Recovering/Resolving]
  - Transaminases increased [Recovering/Resolving]
  - Hypoperfusion [Recovered/Resolved]
  - Anaemia [Recovering/Resolving]
  - International normalised ratio increased [Not Recovered/Not Resolved]
  - Hyponatraemia [Recovered/Resolved]
  - Blood glucose increased [Recovered/Resolved]
  - Dehydration [Recovered/Resolved]

NARRATIVE: CASE EVENT DATE: 20170821
